FAERS Safety Report 7412679-0 (Version None)
Quarter: 2011Q2

REPORT INFORMATION
  Report Type: 
  Country: None (occurrence: None)
  Receive Date: 20110413
  Receipt Date: 20110411
  Transmission Date: 20111010
  Serious: Yes (Death)
  Sender: FDA-Public Use
  Company Number: JP-SANOFI-AVENTIS-2011SA019223

PATIENT
  Age: 72 Year
  Sex: Male

DRUGS (3)
  1. TAXOTERE [Suspect]
     Route: 041
     Dates: start: 20110222, end: 20110222
  2. TAXOTERE [Suspect]
     Route: 041
     Dates: start: 20101228, end: 20101228
  3. TAXOTERE [Suspect]
     Route: 041
     Dates: start: 20110125, end: 20110125

REACTIONS (1)
  - INTERSTITIAL LUNG DISEASE [None]
